FAERS Safety Report 8936353 (Version 1)
Quarter: 2012Q4

REPORT INFORMATION
  Report Type: 
  Country: FR (occurrence: FR)
  Receive Date: 20121130
  Receipt Date: 20121130
  Transmission Date: 20130627
  Serious: Yes (Life-Threatening, Other)
  Sender: FDA-Public Use
  Company Number: FR-ELI_LILLY_AND_COMPANY-FR201211007601

PATIENT
  Age: 60 Year
  Sex: Male

DRUGS (1)
  1. EFIENT [Suspect]
     Dosage: 10 mg, unknown
     Route: 048

REACTIONS (2)
  - Gastrointestinal haemorrhage [Unknown]
  - Colectomy [Unknown]
